FAERS Safety Report 7301721-3 (Version None)
Quarter: 2011Q1

REPORT INFORMATION
  Report Type: 
  Country: None (occurrence: None)
  Receive Date: 20110218
  Receipt Date: 20110207
  Transmission Date: 20110831
  Serious: Yes (Hospitalization, Other)
  Sender: FDA-Public Use
  Company Number: US-ROCHE-733713

PATIENT
  Sex: Male

DRUGS (20)
  1. TUMS ULTRA [Concomitant]
     Dates: start: 20090116
  2. CELEXA [Concomitant]
     Dates: start: 20100225
  3. PREDNISONE [Suspect]
     Indication: RENAL TRANSPLANT
     Route: 065
     Dates: start: 20100806
  4. OMEPRAZOLE [Concomitant]
     Dates: start: 20080718
  5. AMLODIPINE [Concomitant]
     Dates: start: 20090403
  6. ENALAPRIL MALEATE [Concomitant]
     Dates: start: 20090604
  7. SPIRONOLACTONE [Concomitant]
     Dates: start: 20090706
  8. CALCITRIOL [Concomitant]
     Dates: start: 20090403
  9. FLOMAX [Concomitant]
     Dates: start: 20091004
  10. LOPID [Concomitant]
     Dates: start: 20080308
  11. LEXAPRO [Concomitant]
     Dates: start: 20080424
  12. BELATACEPT [Suspect]
     Indication: RENAL TRANSPLANT
     Dosage: FORM: INFUSION (AS PER PROTOCOL)
     Route: 042
     Dates: start: 20090129
  13. BACTRIM [Concomitant]
     Dates: start: 20100730
  14. MYCOPHENOLATE MOFETIL [Suspect]
     Route: 065
     Dates: start: 20081105
  15. ACETAMINOPHEN [Concomitant]
     Dates: start: 20080425
  16. ACTOS [Concomitant]
     Dates: start: 20100803
  17. COUMADIN [Concomitant]
     Dates: start: 20090604
  18. COREG [Concomitant]
     Dates: start: 20090604
  19. FUROSEMIDE [Concomitant]
     Dates: start: 20100729
  20. VALCYTE [Concomitant]
     Dates: start: 20100730

REACTIONS (3)
  - INCLUSION BODY MYOSITIS [None]
  - PNEUMONIA ASPIRATION [None]
  - PNEUMONIA [None]
